FAERS Safety Report 13115375 (Version 1)
Quarter: 2017Q1

REPORT INFORMATION
  Report Type: Spontaneous
  Country: None (occurrence: GB)
  Receive Date: 20170113
  Receipt Date: 20170113
  Transmission Date: 20170428
  Serious: Yes (Death)
  Sender: FDA-Public Use
  Company Number: GB-MEDAC PHARMA, INC.-1062014

PATIENT
  Sex: Male

DRUGS (1)
  1. METOJECT [Suspect]
     Active Substance: METHOTREXATE SODIUM
     Route: 058
     Dates: start: 20140909, end: 20170104

REACTIONS (1)
  - Death [Fatal]

NARRATIVE: CASE EVENT DATE: 2017
